FAERS Safety Report 14776855 (Version 2)
Quarter: 2018Q2

REPORT INFORMATION
  Report Type: Report from Study
  Country: FR (occurrence: FR)
  Receive Date: 20180419
  Receipt Date: 20180606
  Transmission Date: 20180711
  Serious: Yes (Other)
  Sender: FDA-Public Use
  Company Number: FR-ACCORD-065626

PATIENT

DRUGS (13)
  1. DECTANCYL [Concomitant]
     Active Substance: DEXAMETHASONE
  2. INEXIUM [Concomitant]
     Active Substance: ESOMEPRAZOLE
  3. METHOTREXATE. [Suspect]
     Active Substance: METHOTREXATE
     Indication: ACUTE LYMPHOCYTIC LEUKAEMIA
     Dosage: 12 MG, 1X/DAY:QD ?ALSO RECEIVED 17.5 MG, 1X/WEEK ORALLY
     Route: 037
     Dates: start: 20170728
  4. VINCRISTINE [Suspect]
     Active Substance: VINCRISTINE
     Indication: ACUTE LYMPHOCYTIC LEUKAEMIA
     Dosage: 1 MG, 1X/DAY:QD?LAST DOSE ADMINISTERED ON 21-SEP-2017
     Dates: start: 20170727
  5. VANCOMYCIN [Concomitant]
     Active Substance: VANCOMYCIN
  6. ADRIGYL [Concomitant]
     Active Substance: CHOLECALCIFEROL
  7. MERCAPTOPURINE/MERCAPTOPURINE ANHYDROUS [Suspect]
     Active Substance: MERCAPTOPURINE
     Indication: ACUTE LYMPHOCYTIC LEUKAEMIA
     Dosage: 714 MG, 1X/DAY:QD
     Route: 048
     Dates: start: 20170727, end: 20170816
  8. DOLIPRANE [Concomitant]
     Active Substance: ACETAMINOPHEN
  9. FUNGIZONE [Concomitant]
     Active Substance: AMPHOTERICIN B
  10. PEGASPARGASE [Suspect]
     Active Substance: PEGASPARGASE
     Indication: ACUTE LYMPHOCYTIC LEUKAEMIA
     Dosage: 900 IU, UNK
     Route: 042
     Dates: start: 20170727
  11. DEXAMETHASONE. [Suspect]
     Active Substance: DEXAMETHASONE
     Indication: ACUTE LYMPHOCYTIC LEUKAEMIA
     Dosage: 20 MG, 1X/DAY:QD?22.5 MG, 1X/DAY:QD ?LAST DOSE ADMINISTERED ON 26-AUG-2017 (62 DAY)
     Dates: start: 20170727
  12. CEFTAZIDIME/CEFTAZIDIME PENTAHYDRATE [Concomitant]
     Active Substance: CEFTAZIDIME
  13. BACTRIM [Concomitant]
     Active Substance: SULFAMETHOXAZOLE\TRIMETHOPRIM

REACTIONS (1)
  - Hyperbilirubinaemia [Recovered/Resolved]

NARRATIVE: CASE EVENT DATE: 20170921
